FAERS Safety Report 6181806-8 (Version None)
Quarter: 2009Q2

REPORT INFORMATION
  Report Type: 
  Country: None (occurrence: None)
  Receive Date: 20090506
  Receipt Date: 20090427
  Transmission Date: 20091009
  Serious: Yes (Other)
  Sender: FDA-Public Use
  Company Number: PHHY2009BR16194

PATIENT
  Age: 62 Year
  Sex: Female
  Weight: 67 kg

DRUGS (3)
  1. DIOVAN [Suspect]
     Indication: HYPERTENSION
     Dosage: 80 MG
     Dates: start: 20010101
  2. MODURETIC 5-50 [Suspect]
     Dosage: UNK
     Dates: start: 20010101
  3. ASPIRIN [Concomitant]
     Indication: HYPERTENSION
     Dosage: 1DF A DAY
     Route: 048
     Dates: start: 20010101

REACTIONS (4)
  - BLOOD PRESSURE INADEQUATELY CONTROLLED [None]
  - HEADACHE [None]
  - ISCHAEMIA [None]
  - VASCULAR RUPTURE [None]
